FAERS Safety Report 7672570-1 (Version None)
Quarter: 2011Q3

REPORT INFORMATION
  Report Type: 
  Country: None (occurrence: None)
  Receive Date: 20110809
  Receipt Date: 20110727
  Transmission Date: 20111222
  Serious: No
  Sender: FDA-Public Use
  Company Number: US-B.I. PHARMACEUTICALS,INC./RIDGEFIELD-2011-BP-18590BP

PATIENT
  Sex: Male

DRUGS (9)
  1. PRAZOSIN HCL [Concomitant]
     Indication: HYPERTENSION
     Dosage: 2 MG
     Route: 048
     Dates: start: 20100101
  2. JANUVIA [Concomitant]
     Indication: DIABETES MELLITUS
     Dosage: 100 MG
     Route: 048
     Dates: start: 20090101
  3. SIMVASTATIN [Concomitant]
     Indication: BLOOD CHOLESTEROL INCREASED
     Dosage: 40 MG
     Route: 048
     Dates: start: 20010101
  4. POTASSIUM CITRATE ER [Concomitant]
     Indication: NEPHROLITHIASIS
     Dosage: 40 MEQ
     Route: 048
     Dates: start: 20060101
  5. NEXIUM [Concomitant]
     Indication: GASTRIC ULCER
     Dosage: 80 MG
     Route: 048
     Dates: start: 20110601
  6. METOPROLOL TARTRATE [Concomitant]
     Indication: HYPERTENSION
     Dosage: 50 MG
     Route: 048
     Dates: start: 20010101
  7. FLOMAX [Suspect]
     Indication: MICTURITION URGENCY
     Route: 048
     Dates: start: 20040101
  8. AMLODIPINE [Concomitant]
     Indication: HYPERTENSION
     Dosage: 5 MG
     Route: 048
     Dates: start: 20080101
  9. BENAZEPRIL HYDROCHLORIDE [Concomitant]
     Indication: HYPERTENSION
     Dosage: 40 MG
     Route: 048
     Dates: start: 20080101

REACTIONS (1)
  - SENSITIVITY OF TEETH [None]
